FAERS Safety Report 22333349 (Version 1)
Quarter: 2023Q2

REPORT INFORMATION
  Report Type: Spontaneous
  Country: NL (occurrence: NL)
  Receive Date: 20230517
  Receipt Date: 20230517
  Transmission Date: 20230722
  Serious: Yes (Other)
  Sender: FDA-Public Use
  Company Number: None

PATIENT
  Sex: Female
  Weight: 69 kg

DRUGS (3)
  1. RITUXIMAB [Suspect]
     Active Substance: RITUXIMAB
     Indication: Rheumatoid arthritis
     Dosage: FREQ:6 MO;1X PER 6 MONTHS 500 ML
     Dates: start: 20230124
  2. DEPO-MEDROL [Concomitant]
     Active Substance: METHYLPREDNISOLONE ACETATE
     Dosage: 80 ML
  3. DIAZEPAM [Concomitant]
     Active Substance: DIAZEPAM
     Dosage: TABLET, 5 MG (MILLIGRAM)

REACTIONS (1)
  - Bradycardia [Not Recovered/Not Resolved]
